FAERS Safety Report 4696003-2 (Version None)
Quarter: 2005Q2

REPORT INFORMATION
  Report Type: 
  Country: None (occurrence: None)
  Receive Date: 20050620
  Receipt Date: 20050606
  Transmission Date: 20051028
  Serious: Yes (Other)
  Sender: FDA-Public Use
  Company Number: PHBS2005JP06945

PATIENT
  Age: 24 Year
  Sex: Male

DRUGS (3)
  1. LAMISIL [Suspect]
     Indication: NAIL TINEA
     Dosage: 125 MG, QD, ORAL
     Route: 048
     Dates: start: 20040819, end: 20050512
  2. TERBINAFINE HCL [Suspect]
     Dates: start: 20010719
  3. HOMOCLOMIN(HOMOCHLORCYCLIZINE) [Concomitant]

REACTIONS (1)
  - THROMBOCYTOPENIA [None]
